FAERS Safety Report 21473877 (Version 2)
Quarter: 2022Q4

REPORT INFORMATION
  Report Type: Spontaneous
  Country: US (occurrence: US)
  Receive Date: 20221018
  Receipt Date: 20221026
  Transmission Date: 20230113
  Serious: Yes (Hospitalization, Other)
  Sender: FDA-Public Use
  Company Number: US-ORGANON-O2210USA001069

PATIENT
  Sex: Female
  Weight: 122.18 kg

DRUGS (5)
  1. NEXPLANON [Suspect]
     Active Substance: ETONOGESTREL
     Indication: Contraception
     Dosage: 1 IMPLANT
     Route: 059
  2. NEXPLANON [Suspect]
     Active Substance: ETONOGESTREL
     Dosage: 1 IMPLANT, LEFT UPPER ARM
     Route: 059
     Dates: start: 201912, end: 20220411
  3. VISTARIL [Suspect]
     Active Substance: HYDROXYZINE PAMOATE
     Dosage: UNK
     Dates: start: 20211015, end: 202110
  4. MODERNA COVID-19 VACCINE [Suspect]
     Active Substance: ELASOMERAN
     Indication: COVID-19
     Dosage: 1ST DOSE
     Dates: start: 202110
  5. MODERNA COVID-19 VACCINE [Suspect]
     Active Substance: ELASOMERAN
     Dosage: 2ND DOSE

REACTIONS (16)
  - Pulmonary embolism [Recovered/Resolved]
  - Tension headache [Unknown]
  - Bronchitis [Unknown]
  - Rhinovirus infection [Unknown]
  - Feeling abnormal [Unknown]
  - Gastrooesophageal reflux disease [Unknown]
  - Obesity [Unknown]
  - Hypercoagulation [Unknown]
  - Paraesthesia [Unknown]
  - Myalgia [Unknown]
  - Migraine without aura [Unknown]
  - Abnormal uterine bleeding [Unknown]
  - Insomnia [Unknown]
  - Heavy menstrual bleeding [Unknown]
  - Anxiety [Unknown]
  - Oligomenorrhoea [Unknown]

NARRATIVE: CASE EVENT DATE: 20210101
